FAERS Safety Report 5072258-X (Version None)
Quarter: 2006Q3

REPORT INFORMATION
  Report Type: 
  Country: None (occurrence: None)
  Receive Date: 20060710
  Receipt Date: 20050818
  Transmission Date: 20061208
  Serious: Yes (Hospitalization)
  Sender: FDA-Public Use
  Company Number: PHEH2005US09224

PATIENT
  Age: 78 Year
  Sex: Male

DRUGS (9)
  1. GLEEVEC [Suspect]
     Indication: CHRONIC MYELOID LEUKAEMIA
     Dosage: ORAL
     Route: 048
     Dates: start: 20011201
  2. LASIX [Concomitant]
  3. DIGOXIN [Concomitant]
  4. HYDRALAZINE HCL [Concomitant]
  5. METOPROLOL (METOPROLOL) [Concomitant]
  6. ISORDIL [Concomitant]
  7. EPOGEN [Concomitant]
  8. ALLOPURINOL [Concomitant]
  9. COLACE (DOCUSATE SODIUM) [Concomitant]

REACTIONS (1)
  - PLEURAL EFFUSION [None]
